FAERS Safety Report 7562968-4 (Version None)
Quarter: 2011Q2

REPORT INFORMATION
  Report Type: 
  Country: None (occurrence: None)
  Receive Date: 20110622
  Receipt Date: 20110620
  Transmission Date: 20111010
  Serious: No
  Sender: FDA-Public Use
  Company Number: US-TEVA-287158USA

PATIENT
  Age: 56 Year
  Sex: Male

DRUGS (1)
  1. COPAXONE [Suspect]
     Indication: MULTIPLE SCLEROSIS
     Route: 058
     Dates: start: 20110115

REACTIONS (4)
  - VISION BLURRED [None]
  - MUSCULAR WEAKNESS [None]
  - ANXIETY [None]
  - DYSARTHRIA [None]
